FAERS Safety Report 19518451 (Version 1)
Quarter: 2021Q3

REPORT INFORMATION
  Report Type: Report from Study
  Country: US (occurrence: US)
  Receive Date: 20210712
  Receipt Date: 20210712
  Transmission Date: 20211014
  Serious: Yes (Hospitalization, Other)
  Sender: FDA-Public Use
  Company Number: US-SA-2021SA193295

PATIENT
  Age: 97 Year
  Sex: Female

DRUGS (2)
  1. DUPILUMAB [Suspect]
     Active Substance: DUPILUMAB
     Indication: PEMPHIGOID
     Dosage: 300 MG, QOW
     Route: 058
  2. DUPILUMAB [Suspect]
     Active Substance: DUPILUMAB
     Indication: DERMATITIS ATOPIC
     Dosage: 600 MG, 1X
     Route: 058
     Dates: start: 20210420, end: 20210420

REACTIONS (7)
  - Nausea [Recovered/Resolved]
  - Cholecystitis [Unknown]
  - Enteritis [Recovered/Resolved]
  - Abdominal pain [Recovered/Resolved]
  - Cholecystitis infective [Recovered/Resolved]
  - Product use in unapproved indication [Unknown]
  - Decreased appetite [Recovered/Resolved]

NARRATIVE: CASE EVENT DATE: 20210605
